FAERS Safety Report 9263820 (Version 1)
Quarter: 2013Q2

REPORT INFORMATION
  Report Type: Spontaneous
  Country: US (occurrence: US)
  Receive Date: 20130430
  Receipt Date: 20130430
  Transmission Date: 20140414
  Serious: Yes (Hospitalization)
  Sender: FDA-Public Use
  Company Number: US-BAYER-2013-052160

PATIENT
  Age: 36 Year
  Sex: Female

DRUGS (6)
  1. YASMIN [Suspect]
  2. YAZ [Suspect]
  3. ALBUTEROL [Concomitant]
  4. SEREVENT DISKUS [Concomitant]
  5. LORATA-DINE D [LORATADINE,PSEUDOEPHEDRINE HYDROCHLORIDE] [Concomitant]
     Route: 048
  6. QVAR [Concomitant]

REACTIONS (1)
  - Pulmonary embolism [None]
